FAERS Safety Report 24771336 (Version 2)
Quarter: 2025Q1

REPORT INFORMATION
  Report Type: Report from Study
  Country: IT (occurrence: IT)
  Receive Date: 20241224
  Receipt Date: 20250114
  Transmission Date: 20250409
  Serious: Yes (Hospitalization, Other)
  Sender: UCB
  Company Number: IT-UCBSA-2024066834

PATIENT
  Age: 55 Year
  Sex: Female
  Weight: 68 kg

DRUGS (1)
  1. BIMEKIZUMAB [Suspect]
     Active Substance: BIMEKIZUMAB
     Indication: Psoriasis
     Dosage: 320 MILLIGRAM, EV 8 WEEKS
     Route: 058
     Dates: start: 20240215, end: 20241214

REACTIONS (2)
  - Meningitis herpes [Recovering/Resolving]
  - Lemierre syndrome [Recovering/Resolving]

NARRATIVE: CASE EVENT DATE: 20241214
